FAERS Safety Report 7204922-8 (Version None)
Quarter: 2010Q4

REPORT INFORMATION
  Report Type: 
  Country: None (occurrence: None)
  Receive Date: 20101230
  Receipt Date: 20101227
  Transmission Date: 20110411
  Serious: Yes (Death, Hospitalization)
  Sender: FDA-Public Use
  Company Number: ES-GENZYME-FLUD-1000571

PATIENT

DRUGS (4)
  1. FLUDARA [Suspect]
     Indication: ACUTE MYELOID LEUKAEMIA
     Dosage: 40 MG/M2, QD, DAYS 1 THROUGH 5
     Route: 048
  2. NEUPOGEN [Suspect]
     Indication: ACUTE MYELOID LEUKAEMIA
     Dosage: 300 MCG, QD, DAYS -1 THROUGH 5
     Route: 058
  3. CYTARABINE [Suspect]
     Indication: ACUTE MYELOID LEUKAEMIA
     Dosage: 20 MG/M2, QD, DAYS 1 THROUGH 5
     Route: 058
  4. IDARUBICIN [Suspect]
     Indication: ACUTE MYELOID LEUKAEMIA
     Dosage: 15 MG/M2, QD, DAYS 1 THROUGH 3
     Route: 048

REACTIONS (7)
  - ADVERSE EVENT [None]
  - BRADYARRHYTHMIA [None]
  - DEATH [None]
  - FEBRILE NEUTROPENIA [None]
  - HAEMORRHAGE [None]
  - LEUKAEMIA [None]
  - PNEUMONIA [None]
